FAERS Safety Report 13406179 (Version 1)
Quarter: 2017Q2

REPORT INFORMATION
  Report Type: Spontaneous
  Country: IN (occurrence: IN)
  Receive Date: 20170405
  Receipt Date: 20170405
  Transmission Date: 20170830
  Serious: Yes (Hospitalization, Other)
  Sender: FDA-Public Use
  Company Number: IN-TORRENT-00001004

PATIENT
  Age: 77 Year
  Sex: Female

DRUGS (4)
  1. METOPROLOL. [Concomitant]
     Active Substance: METOPROLOL
  2. LEVOTHYROXINE SODIUM. [Concomitant]
     Active Substance: LEVOTHYROXINE SODIUM
  3. LOSARTAN. [Suspect]
     Active Substance: LOSARTAN
  4. LITHIUM. [Suspect]
     Active Substance: LITHIUM

REACTIONS (11)
  - Hypotension [Unknown]
  - Atrioventricular block complete [Recovered/Resolved]
  - Toxicity to various agents [Recovered/Resolved]
  - Sinus bradycardia [Recovered/Resolved]
  - Dyskinesia [Unknown]
  - Nodal rhythm [Recovered/Resolved]
  - Atrial fibrillation [Recovered/Resolved]
  - Tremor [Unknown]
  - Ataxia [Unknown]
  - Hypothyroidism [Unknown]
  - Dizziness [Unknown]
